FAERS Safety Report 15341946 (Version 1)
Quarter: 2018Q3

REPORT INFORMATION
  Report Type: Spontaneous
  Country: US (occurrence: US)
  Receive Date: 20180828
  Receipt Date: 20180828
  Transmission Date: 20181010
  Serious: Yes (Hospitalization)
  Sender: FDA-Public Use
  Company Number: None

PATIENT
  Sex: Female

DRUGS (13)
  1. FOLIC ACID TAB 1MG [Concomitant]
  2. PROCHLORPER TAB 10MG [Concomitant]
  3. ZOLPIDEM TAB 10MG [Concomitant]
  4. LEVOFLOXACIN TAB 750MG [Concomitant]
  5. ALLOPURINOL TAB 300MG [Concomitant]
  6. ZARXIO [Suspect]
     Active Substance: FILGRASTIM-SNDZ
     Indication: AGRANULOCYTOSIS
     Route: 058
     Dates: start: 20180522
  7. RYDAPT [Suspect]
     Active Substance: MIDOSTAURIN
     Indication: ACUTE MYELOID LEUKAEMIA
     Route: 048
     Dates: start: 20180117
  8. LORAZEPAM TAB 0.5MG [Concomitant]
  9. METHYLPRED TAB 4MG [Concomitant]
  10. DEXAMETH PHO SOL 0.1% OP [Concomitant]
  11. DEXAMETHASON TAB 4MG [Concomitant]
     Active Substance: DEXAMETHASONE
  12. DESVENLAFAX TAB 50MG ER [Concomitant]
  13. HYDROCO/APAP TAB 7.5?325 [Concomitant]

REACTIONS (1)
  - Hospitalisation [None]
